FAERS Safety Report 18143256 (Version 2)
Quarter: 2020Q3

REPORT INFORMATION
  Report Type: Report from Study
  Country: CN (occurrence: CN)
  Receive Date: 20200813
  Receipt Date: 20200817
  Transmission Date: 20201103
  Serious: No
  Sender: FDA-Public Use
  Company Number: CN-009507513-2008CHN002276

PATIENT
  Age: 53 Year
  Sex: Female

DRUGS (1)
  1. SUGAMMADEX SODIUM [Suspect]
     Active Substance: SUGAMMADEX SODIUM
     Dosage: 130 MILLIGRAM
     Route: 042
     Dates: start: 20200716, end: 20200716

REACTIONS (2)
  - Anaemia [Unknown]
  - Fibrin D dimer increased [Unknown]

NARRATIVE: CASE EVENT DATE: 20200716
